FAERS Safety Report 7808986 (Version 7)
Quarter: 2017Q2

REPORT INFORMATION
  Report Type: Report from Study
  Country: CA (occurrence: CA)
  Receive Date: 20110211
  Receipt Date: 20170605
  Transmission Date: 20170830
  Serious: Yes (Hospitalization, Disabling, Other)
  Sender: FDA-Public Use
  Company Number: PHHY2011CA02158

PATIENT
  Age: 64 Year
  Sex: Female

DRUGS (18)
  1. SANDOSTATIN LAR DEPOT [Suspect]
     Active Substance: OCTREOTIDE ACETATE
     Indication: CARCINOID SYNDROME
     Dosage: 30 MG, EVERY 4 WEEKS
     Route: 030
  2. CARVEDIOL [Concomitant]
     Active Substance: CARVEDILOL
     Dosage: UNK UKN, UNK
  3. COREG [Concomitant]
     Active Substance: CARVEDILOL
     Dosage: 18 MG, QD
  4. DICETEL [Concomitant]
     Active Substance: PINAVERIUM BROMIDE
     Dosage: UNK UKN, UNK
  5. PAXIL [Concomitant]
     Active Substance: PAROXETINE HYDROCHLORIDE
     Dosage: UNK UKN, UNK
  6. ALTACE [Concomitant]
     Active Substance: RAMIPRIL
  7. ASPIRIN. [Concomitant]
     Active Substance: ASPIRIN
     Dosage: UNK UKN, UNK
  8. VITAMIN C [Concomitant]
     Active Substance: ASCORBIC ACID
     Dosage: UNK UKN, UNK
  9. IMOVANE [Concomitant]
     Active Substance: ZOPICLONE
     Dosage: UNK UKN, UNK
  10. LASIX [Concomitant]
     Active Substance: FUROSEMIDE
     Indication: PRODUCT USED FOR UNKNOWN INDICATION
     Dosage: UNK UKN, UNK
     Route: 065
  11. VITAMIN D [Concomitant]
     Active Substance: CHOLECALCIFEROL
     Dosage: UNK UKN, UNK
  12. MULTIVITAMIN [Concomitant]
     Active Substance: VITAMINS
     Dosage: UNK UKN, UNK
  13. TYLENOL [Concomitant]
     Active Substance: ACETAMINOPHEN
     Dosage: UNK UKN, UNK
  14. COUMADIN [Concomitant]
     Active Substance: WARFARIN SODIUM
     Dosage: UNK UKN, UNK
  15. CALCIUM [Concomitant]
     Active Substance: CALCIUM
     Dosage: UNK UKN, UNK
  16. SANDOSTATIN [Suspect]
     Active Substance: OCTREOTIDE ACETATE
     Indication: CARCINOID TUMOUR
     Dosage: 150 UG, TID
     Route: 058
     Dates: start: 20101219, end: 20110317
  17. SPIRONOLACTONE. [Concomitant]
     Active Substance: SPIRONOLACTONE
     Indication: PRODUCT USED FOR UNKNOWN INDICATION
     Route: 065
  18. SANDOSTATIN LAR DEPOT [Suspect]
     Active Substance: OCTREOTIDE ACETATE
     Dosage: 20 MG, EVERY 4 WEEKS
     Route: 030
     Dates: start: 20110401

REACTIONS (15)
  - Hypotension [Unknown]
  - Bronchitis [Unknown]
  - Agitation [Unknown]
  - Thrombosis [Unknown]
  - Fatigue [Unknown]
  - Carcinoid heart disease [Recovered/Resolved]
  - Fluid retention [Unknown]
  - Eye inflammation [Unknown]
  - Asthenia [Unknown]
  - Dyspnoea [Unknown]
  - Syncope [Unknown]
  - Atrial fibrillation [Recovered/Resolved]
  - Rash maculo-papular [Unknown]
  - Rash pruritic [Recovered/Resolved]
  - Cardiac failure congestive [Recovered/Resolved]

NARRATIVE: CASE EVENT DATE: 201308
